FAERS Safety Report 4431302-0 (Version None)
Quarter: 2004Q3

REPORT INFORMATION
  Report Type: 
  Country: None (occurrence: None)
  Receive Date: 20040817
  Receipt Date: 20040804
  Transmission Date: 20050211
  Serious: Yes (Other)
  Sender: FDA-Public Use
  Company Number: 2004227808CA

PATIENT
  Age: 26 Year
  Sex: Female

DRUGS (1)
  1. DEPO-PROVERA [Suspect]
     Dosage: 1ST INJ, INTRAMUSCULAR
     Route: 030
     Dates: start: 20040616, end: 20040616

REACTIONS (13)
  - ACNE [None]
  - ASTHENIA [None]
  - DEPRESSED MOOD [None]
  - DIZZINESS [None]
  - EMOTIONAL DISORDER [None]
  - FEELING ABNORMAL [None]
  - HEADACHE [None]
  - IMPAIRED WORK ABILITY [None]
  - MARKEDLY REDUCED DIETARY INTAKE [None]
  - TEARFULNESS [None]
  - VAGINAL HAEMORRHAGE [None]
  - VERTIGO [None]
  - VOMITING [None]
